FAERS Safety Report 6431203-2 (Version None)
Quarter: 2009Q4

REPORT INFORMATION
  Report Type: 
  Country: None (occurrence: None)
  Receive Date: 20091106
  Receipt Date: 20091028
  Transmission Date: 20100525
  Serious: Yes (Hospitalization, Other)
  Sender: FDA-Public Use
  Company Number: US-BAYER-200937468GPV

PATIENT

DRUGS (3)
  1. CLOPIDOGREL [Suspect]
     Indication: CORONARY ARTERY DISEASE
  2. ASPIRIN [Suspect]
     Indication: CORONARY ARTERY DISEASE
     Dosage: MEAN DOSE 161? 115 MG
  3. OMEGA-3 FATTY ACID [Suspect]
     Indication: CORONARY ARTERY DISEASE

REACTIONS (1)
  - RECTAL HAEMORRHAGE [None]
